FAERS Safety Report 4544509-9 (Version None)
Quarter: 2004Q4

REPORT INFORMATION
  Report Type: 
  Country: None (occurrence: None)
  Receive Date: 20041230
  Receipt Date: 20041220
  Transmission Date: 20050328
  Serious: Yes (Hospitalization)
  Sender: FDA-Public Use
  Company Number: 2004-0007870

PATIENT
  Age: 37 Year
  Sex: Male
  Weight: 84 kg

DRUGS (6)
  1. VIREAD [Suspect]
     Indication: ACQUIRED IMMUNODEFICIENCY SYNDROME
     Dosage: 300 MG, 1 IN 1 D, ORAL
     Route: 048
     Dates: start: 20040225
  2. BACTRIM [Suspect]
     Dosage: 1 DOSAGE FORMS, 1 IN 1 D, ORAL
     Route: 048
     Dates: start: 20040121
  3. TAXOTERE [Suspect]
     Indication: KAPOSI'S SARCOMA
     Dosage: 115 MG, 1 IN 1 M, INTRAVENOUS
     Route: 042
     Dates: start: 20040126, end: 20040927
  4. KALETRA [Suspect]
     Indication: ACQUIRED IMMUNODEFICIENCY SYNDROME
     Dosage: 3 DOSAGE FORMS, 2 IN 1 D, ORAL
     Route: 048
     Dates: start: 20040121
  5. VIDEX [Suspect]
     Indication: ACQUIRED IMMUNODEFICIENCY SYNDROME
     Dosage: 250 MG, 1 IN 1 D, ORAL
     Route: 048
     Dates: start: 20040225
  6. LEDERFOLIN (CALCIUM FOLINATE) [Suspect]
     Dosage: 25 MG, 1 IN 1 D, ORAL
     Route: 048
     Dates: start: 20040121, end: 20041113

REACTIONS (4)
  - ASCITES [None]
  - CARDIAC TAMPONADE [None]
  - GENERALISED OEDEMA [None]
  - PERICARDIAL EFFUSION [None]
